FAERS Safety Report 6697590-5 (Version None)
Quarter: 2010Q2

REPORT INFORMATION
  Report Type: 
  Country: None (occurrence: None)
  Receive Date: 20100426
  Receipt Date: 20091130
  Transmission Date: 20101027
  Serious: No
  Sender: FDA-Public Use
  Company Number: US-ABBOTT-09P-163-0612717-00

PATIENT
  Sex: Female
  Weight: 72.64 kg

DRUGS (4)
  1. AZMACORT [Suspect]
     Indication: CHRONIC OBSTRUCTIVE PULMONARY DISEASE
     Dosage: APPROX 2 TO 3 PUFFS BID
     Route: 055
     Dates: start: 20050101, end: 20091128
  2. COMBIVENT [Concomitant]
     Indication: CHRONIC OBSTRUCTIVE PULMONARY DISEASE
     Dosage: WAS USING AS EMERGENCY MEDICATION, BUT NOW DAILY.
     Route: 055
     Dates: start: 20091128
  3. ALBUTEROL SULATE [Concomitant]
     Indication: CHRONIC OBSTRUCTIVE PULMONARY DISEASE
  4. XALATAN [Concomitant]
     Indication: GLAUCOMA

REACTIONS (1)
  - FATIGUE [None]
